FAERS Safety Report 7720553-5 (Version None)
Quarter: 2011Q3

REPORT INFORMATION
  Report Type: 
  Country: None (occurrence: None)
  Receive Date: 20110831
  Receipt Date: 20110831
  Transmission Date: 20111222
  Serious: Yes (Hospitalization)
  Sender: FDA-Public Use
  Company Number: None

PATIENT
  Age: 68 Year
  Sex: Female
  Weight: 62.142 kg

DRUGS (3)
  1. LITHIUM CARBONATE [Concomitant]
     Route: 048
  2. CLOFARABINE [Suspect]
     Indication: ACUTE MYELOID LEUKAEMIA
     Dosage: 20 MG
     Route: 048
     Dates: start: 20110804, end: 20110808
  3. PAXIL [Concomitant]
     Route: 048

REACTIONS (4)
  - LEUKAEMIA CUTIS [None]
  - DELIRIUM [None]
  - FEBRILE NEUTROPENIA [None]
  - MENTAL STATUS CHANGES [None]
